FAERS Safety Report 23474379 (Version 1)
Quarter: 2024Q1

REPORT INFORMATION
  Report Type: Report from Study
  Country: US (occurrence: US)
  Receive Date: 20240204
  Receipt Date: 20240204
  Transmission Date: 20240410
  Serious: Yes (Hospitalization, Other)
  Sender: FDA-Public Use
  Company Number: US-EXELIXIS-CABO-23061355

PATIENT
  Age: 80 Year
  Sex: Female

DRUGS (8)
  1. CABOMETYX [Suspect]
     Active Substance: CABOZANTINIB S-MALATE
     Indication: Renal cell carcinoma
     Dosage: 40 MG, QD
     Dates: start: 20230207
  2. CABOMETYX [Suspect]
     Active Substance: CABOZANTINIB S-MALATE
     Dosage: 40 MG, QD
     Dates: end: 20230419
  3. OPDIVO [Suspect]
     Active Substance: NIVOLUMAB
     Indication: Renal cell carcinoma
     Dosage: UNK, Q2WEEKS
     Route: 042
     Dates: start: 20230207, end: 20230329
  4. VITAMINS [Concomitant]
     Active Substance: VITAMINS
  5. ESCITALOPRAM OXALATE [Concomitant]
     Active Substance: ESCITALOPRAM OXALATE
  6. LEVOTHYROXINE SODIUM [Concomitant]
     Active Substance: LEVOTHYROXINE SODIUM
  7. SIMVASTATIN [Concomitant]
     Active Substance: SIMVASTATIN
  8. ASPIRIN [Concomitant]
     Active Substance: ASPIRIN

REACTIONS (10)
  - Deep vein thrombosis [Recovering/Resolving]
  - Vena cava thrombosis [Recovering/Resolving]
  - Pruritus [Not Recovered/Not Resolved]
  - Oral pain [Not Recovered/Not Resolved]
  - Blood pressure increased [Recovering/Resolving]
  - Cough [Not Recovered/Not Resolved]
  - Nausea [Not Recovered/Not Resolved]
  - Diarrhoea [Not Recovered/Not Resolved]
  - Spinal disorder [Unknown]
  - Hepatic enzyme increased [Not Recovered/Not Resolved]

NARRATIVE: CASE EVENT DATE: 20230314
